FAERS Safety Report 7585933-X (Version None)
Quarter: 2011Q2

REPORT INFORMATION
  Report Type: 
  Country: None (occurrence: None)
  Receive Date: 20110603
  Receipt Date: 20110509
  Transmission Date: 20111010
  Serious: No
  Sender: FDA-Public Use
  Company Number: 2011SP021053

PATIENT
  Age: 40 Year
  Sex: Female

DRUGS (2)
  1. SAPHRIS [Suspect]
     Indication: BIPOLAR DISORDER
     Dosage: 10 MG;BID;SL ; 5 MG;BID;SL
     Route: 060
     Dates: start: 20110301
  2. OLANIZIPINE [Concomitant]

REACTIONS (1)
  - BACK PAIN [None]
